FAERS Safety Report 11198821 (Version 1)
Quarter: 2015Q2

REPORT INFORMATION
  Report Type: Spontaneous
  Country: CA (occurrence: CA)
  Receive Date: 20150618
  Receipt Date: 20150618
  Transmission Date: 20150821
  Serious: Yes (Hospitalization)
  Sender: FDA-Public Use
  Company Number: CA-SA-2014SA171909

PATIENT
  Age: 28 Year
  Sex: Female
  Weight: 113 kg

DRUGS (8)
  1. AMITRIPTYLINE [Concomitant]
     Active Substance: AMITRIPTYLINE
     Dates: end: 201412
  2. BETALOL [Concomitant]
  3. METHYLDOPA. [Concomitant]
     Active Substance: METHYLDOPA
  4. TEGRETOL [Concomitant]
     Active Substance: CARBAMAZEPINE
     Dates: end: 201412
  5. OXYCODONE [Concomitant]
     Active Substance: OXYCODONE
     Dosage: 5/325
     Dates: end: 201412
  6. PALAFER [Concomitant]
     Active Substance: FERROUS FUMARATE
  7. FABRAZYME [Suspect]
     Active Substance: AGALSIDASE BETA
     Indication: FABRY^S DISEASE
     Route: 041
     Dates: start: 20140919, end: 20150527
  8. TORADOL [Concomitant]
     Active Substance: KETOROLAC TROMETHAMINE
     Dates: end: 201412

REACTIONS (4)
  - Anxiety [Unknown]
  - Hospitalisation [Unknown]
  - Exposure during pregnancy [Unknown]
  - Dyspnoea [Recovered/Resolved]

NARRATIVE: CASE EVENT DATE: 20140925
